FAERS Safety Report 7064515-2 (Version None)
Quarter: 2010Q4

REPORT INFORMATION
  Report Type: 
  Country: None (occurrence: None)
  Receive Date: 20101027
  Receipt Date: 20101019
  Transmission Date: 20110411
  Serious: Yes (Other)
  Sender: FDA-Public Use
  Company Number: US-SANOFI-AVENTIS-2010SA064007

PATIENT
  Age: 71 Year
  Sex: Male

DRUGS (2)
  1. LANTUS [Suspect]
     Dosage: DOSE:20 UNIT(S)
     Route: 058
  2. LANTUS [Suspect]
     Route: 058
     Dates: start: 20000101

REACTIONS (1)
  - LIP AND/OR ORAL CAVITY CANCER [None]
